FAERS Safety Report 10918847 (Version 3)
Quarter: 2016Q3

REPORT INFORMATION
  Report Type: Spontaneous
  Country: US (occurrence: US)
  Receive Date: 20150316
  Receipt Date: 20160915
  Transmission Date: 20161109
  Serious: Yes (Other)
  Sender: FDA-Public Use
  Company Number: US-ASTELLAS-2015US002819

PATIENT
  Age: 71 Year
  Sex: Male

DRUGS (2)
  1. XGEVA [Suspect]
     Active Substance: DENOSUMAB
     Indication: PRODUCT USED FOR UNKNOWN INDICATION
     Dosage: UNK, UNKNOWN FREQ.
     Route: 065
  2. XTANDI [Suspect]
     Active Substance: ENZALUTAMIDE
     Indication: PROSTATE CANCER
     Dosage: 160 MG (4 X 40 MG), ONCE DAILY
     Route: 048

REACTIONS (17)
  - Malignant neoplasm progression [Unknown]
  - Vertigo [Recovering/Resolving]
  - Decreased appetite [Recovering/Resolving]
  - Blood pressure increased [Unknown]
  - Fall [Unknown]
  - Diarrhoea [Unknown]
  - Asthenia [Unknown]
  - Fatigue [Recovering/Resolving]
  - Back pain [Unknown]
  - Prostatic specific antigen increased [Unknown]
  - Head injury [Unknown]
  - Back pain [Unknown]
  - Fatigue [Unknown]
  - Weight increased [Unknown]
  - Diarrhoea [Unknown]
  - Drug dose omission [Unknown]
  - Abscess limb [Unknown]

NARRATIVE: CASE EVENT DATE: 201507
